FAERS Safety Report 15057077 (Version 1)
Quarter: 2018Q2

REPORT INFORMATION
  Report Type: Spontaneous
  Country: US (occurrence: US)
  Receive Date: 20180604
  Receipt Date: 20180604
  Transmission Date: 20180711
  Serious: No
  Sender: FDA-Public Use
  Company Number: None

PATIENT
  Age: 67 Year
  Sex: Female

DRUGS (1)
  1. OCTREOTIDE 50MCG [Suspect]
     Active Substance: OCTREOTIDE
     Indication: DIARRHOEA
     Dosage: 50MCG EVERY 8 HOURS, PRN UNDER THE SKIN
     Route: 058

REACTIONS (3)
  - Hair colour changes [None]
  - Myalgia [None]
  - Musculoskeletal stiffness [None]
